FAERS Safety Report 23959307 (Version 1)
Quarter: 2024Q2

REPORT INFORMATION
  Report Type: Spontaneous
  Country: PL (occurrence: PL)
  Receive Date: 20240611
  Receipt Date: 20240611
  Transmission Date: 20240716
  Serious: Yes (Other)
  Sender: FDA-Public Use
  Company Number: PL-AMGEN-POLSP2024111269

PATIENT
  Age: 61 Year
  Sex: Male

DRUGS (7)
  1. VECTIBIX [Suspect]
     Active Substance: PANITUMUMAB
     Indication: Adenocarcinoma metastatic
     Dosage: 576 MILLIGRAM
     Route: 042
     Dates: start: 20210415
  2. VECTIBIX [Suspect]
     Active Substance: PANITUMUMAB
     Dosage: 6 MILLIGRAM/KILOGRAM, BODY WEIGHT
     Route: 042
     Dates: start: 202307
  3. OXALIPLATIN [Concomitant]
     Active Substance: OXALIPLATIN
     Indication: Adenocarcinoma metastatic
     Dosage: 177.4 MILLIGRAM
     Route: 042
     Dates: start: 20210415
  4. OXALIPLATIN [Concomitant]
     Active Substance: OXALIPLATIN
     Dosage: 65 MILLIGRAM/SQ. METER, (DOSE REDUCED)
     Route: 065
  5. FLUOROURACIL [Concomitant]
     Active Substance: FLUOROURACIL
     Indication: Adenocarcinoma metastatic
     Dosage: 834.8 MILLIGRAM (IV BOLUS (DZI-DZ2) 400 MG/M2)
     Route: 042
     Dates: start: 20210415
  6. FLUOROURACIL [Concomitant]
     Active Substance: FLUOROURACIL
     Dosage: 1252.2 MILLIGRAM (22-HOUR INFUSION (DZI-DZ2) 600 MG/M2)
     Route: 042
  7. LEVOFOLIC [Concomitant]
     Indication: Adenocarcinoma metastatic
     Dosage: 208.7 MILLIGRAM (IV 22-HOUR INFUSION 100MG/M2 (DZ I -DZ2).
     Route: 042
     Dates: start: 20210415

REACTIONS (4)
  - Polyneuropathy [Unknown]
  - Skin toxicity [Recovering/Resolving]
  - Hepatomegaly [Unknown]
  - Therapy partial responder [Unknown]

NARRATIVE: CASE EVENT DATE: 20230601
